FAERS Safety Report 5455224-1 (Version None)
Quarter: 2007Q3

REPORT INFORMATION
  Report Type: 
  Country: None (occurrence: None)
  Receive Date: 20070918
  Receipt Date: 20070910
  Transmission Date: 20080115
  Serious: Yes (Death, Hospitalization, Other)
  Sender: FDA-Public Use
  Company Number: US-AVENTIS-200716475US

PATIENT
  Sex: Female
  Weight: 58.18 kg

DRUGS (6)
  1. TAXOTERE [Suspect]
     Indication: BREAST CANCER
     Route: 042
     Dates: start: 20070821, end: 20070821
  2. ADRIAMYCIN PFS [Suspect]
     Indication: BREAST CANCER
     Route: 042
     Dates: start: 20070821, end: 20070821
  3. CYTOXAN [Suspect]
     Indication: BREAST CANCER
     Dosage: DOSE: UNK
     Route: 042
     Dates: start: 20070821, end: 20070821
  4. NEULASTA [Concomitant]
     Dates: start: 20070822, end: 20070822
  5. NORVASC [Concomitant]
  6. LIPITOR [Concomitant]

REACTIONS (7)
  - COLITIS ISCHAEMIC [None]
  - NEUTROPHIL COUNT DECREASED [None]
  - PAIN [None]
  - PLATELET COUNT DECREASED [None]
  - PYREXIA [None]
  - SEPSIS [None]
  - WHITE BLOOD CELL COUNT DECREASED [None]
